FAERS Safety Report 24185475 (Version 2)
Quarter: 2025Q2

REPORT INFORMATION
  Report Type: Spontaneous
  Country: NL (occurrence: NL)
  Receive Date: 20240807
  Receipt Date: 20250529
  Transmission Date: 20250716
  Serious: Yes (Hospitalization)
  Sender: MYLAN
  Company Number: NL-ELI_LILLY_AND_COMPANY-NL202407008061

PATIENT
  Age: 63 Year
  Sex: Male

DRUGS (7)
  1. TRAMADOL [Suspect]
     Active Substance: TRAMADOL
     Indication: Product used for unknown indication
  2. CALCIUM [Suspect]
     Active Substance: CALCIUM
     Indication: Hypercalcaemia
  3. SELPERCATINIB [Suspect]
     Active Substance: SELPERCATINIB
     Indication: Medullary thyroid cancer
     Dosage: 160 MILLIGRAM, QD, DAILY
     Dates: start: 20221117
  4. SELPERCATINIB [Suspect]
     Active Substance: SELPERCATINIB
     Dosage: 160 MILLIGRAM, QD, DAILY
     Dates: start: 20240710
  5. AMLODIPINE [Concomitant]
     Active Substance: AMLODIPINE BESYLATE
     Indication: Product used for unknown indication
  6. ALFACALCIDOL [Concomitant]
     Active Substance: ALFACALCIDOL
     Indication: Product used for unknown indication
  7. METFORMIN [Concomitant]
     Active Substance: METFORMIN HYDROCHLORIDE
     Indication: Product used for unknown indication

REACTIONS (12)
  - Dehydration [Recovering/Resolving]
  - Renal impairment [Recovering/Resolving]
  - Hypercalcaemia [Recovering/Resolving]
  - Post procedural complication [Unknown]
  - Bone lesion [Unknown]
  - Fluid intake reduced [Unknown]
  - Abdominal discomfort [Unknown]
  - Angiopathy [Unknown]
  - Urinary tract infection [Unknown]
  - Somnolence [Unknown]
  - Confusional state [Unknown]
  - Fatigue [Unknown]

NARRATIVE: CASE EVENT DATE: 20240709
